FAERS Safety Report 8531168-3 (Version None)
Quarter: 2012Q3

REPORT INFORMATION
  Report Type: 
  Country: None (occurrence: None)
  Receive Date: 20120710
  Receipt Date: 20120626
  Transmission Date: 20120928
  Serious: Yes (Disabling, Other)
  Sender: FDA-Public Use
  Company Number: 2011MA002836

PATIENT
  Sex: Female

DRUGS (2)
  1. LEXAPRO [Concomitant]
  2. METOCLOPRAMIDE [Suspect]
     Indication: GASTROINTESTINAL DISORDER
     Dosage: 10 MG
     Dates: start: 20081001, end: 20091227

REACTIONS (6)
  - PAIN [None]
  - TARDIVE DYSKINESIA [None]
  - ANXIETY [None]
  - EXTRAPYRAMIDAL DISORDER [None]
  - ECONOMIC PROBLEM [None]
  - FAMILY STRESS [None]
